FAERS Safety Report 18732528 (Version 1)
Quarter: 2021Q1

REPORT INFORMATION
  Report Type: Report from Study
  Country: None (occurrence: BR)
  Receive Date: 20210113
  Receipt Date: 20210113
  Transmission Date: 20210419
  Serious: Yes (Other)
  Sender: FDA-Public Use
  Company Number: BR-COEPTIS PHARMACEUTICALS, INC.-COE-2020-000102

PATIENT
  Age: 10 Year
  Sex: Female

DRUGS (4)
  1. AMLODIPINE [Suspect]
     Active Substance: AMLODIPINE BESYLATE
     Route: 048
  2. PHENOBARBITAL. [Suspect]
     Active Substance: PHENOBARBITAL
  3. ACYCLOVIR. [Concomitant]
     Active Substance: ACYCLOVIR
  4. CYCLOSPORINE. [Suspect]
     Active Substance: CYCLOSPORINE

REACTIONS (2)
  - Pyogenic granuloma [Not Recovered/Not Resolved]
  - Gingival hypertrophy [Not Recovered/Not Resolved]
